FAERS Safety Report 5910477-8 (Version None)
Quarter: 2008Q4

REPORT INFORMATION
  Report Type: 
  Country: None (occurrence: None)
  Receive Date: 20081006
  Receipt Date: 20081006
  Transmission Date: 20090506
  Serious: Yes (Hospitalization)
  Sender: FDA-Public Use
  Company Number: None

PATIENT
  Age: 61 Year
  Sex: Male
  Weight: 68.1756 kg

DRUGS (7)
  1. BEVACIZUMAB [Suspect]
     Indication: PANCREATIC CARCINOMA METASTATIC
     Dosage: 10MG/KGIV,D1+15 OF CYCL
     Route: 042
     Dates: start: 20080806, end: 20080910
  2. COMPAZINE [Concomitant]
  3. CREON [Concomitant]
  4. EMLA [Concomitant]
  5. METHATDONE [Concomitant]
  6. MIRALAX [Concomitant]
  7. VICODIN [Concomitant]

REACTIONS (3)
  - COLITIS [None]
  - DEEP VEIN THROMBOSIS [None]
  - GASTROINTESTINAL HAEMORRHAGE [None]
